FAERS Safety Report 8174005-1 (Version None)
Quarter: 2012Q1

REPORT INFORMATION
  Report Type: 
  Country: None (occurrence: None)
  Receive Date: 20120227
  Receipt Date: 20120209
  Transmission Date: 20120608
  Serious: Yes (Hospitalization)
  Sender: FDA-Public Use
  Company Number: FK201200404

PATIENT
  Age: 50 Year
  Sex: Female
  Weight: 54.4316 kg

DRUGS (1)
  1. DACARBAZINE [Suspect]
     Indication: MALIGNANT MELANOMA

REACTIONS (4)
  - HYPOAESTHESIA [None]
  - DIPLOPIA [None]
  - TREMOR [None]
  - GAIT DISTURBANCE [None]
